FAERS Safety Report 8319544-5 (Version None)
Quarter: 2012Q2

REPORT INFORMATION
  Report Type: 
  Country: None (occurrence: None)
  Receive Date: 20120427
  Receipt Date: 20120424
  Transmission Date: 20120825
  Serious: Yes (Other)
  Sender: FDA-Public Use
  Company Number: US-PFIZER INC-2012101706

PATIENT
  Sex: Female
  Weight: 81.633 kg

DRUGS (6)
  1. METOPROLOL [Concomitant]
     Dosage: 25 MG, 1X/DAY
  2. SIMVASTATIN [Concomitant]
     Dosage: 20 MG, 1X/DAY
  3. ASPIRIN [Concomitant]
     Dosage: 81 MG, 1X/DAY
  4. TOVIAZ [Suspect]
     Indication: HYPERTONIC BLADDER
     Dosage: 4 MG, 1X/DAY
     Route: 048
     Dates: start: 20120420
  5. OXYGEN [Concomitant]
     Indication: ILL-DEFINED DISORDER
     Dosage: UNK
  6. PANTOPRAZOLE [Concomitant]
     Dosage: 40 MG, 1X/DAY

REACTIONS (1)
  - DIZZINESS [None]
